FAERS Safety Report 5627117-8 (Version None)
Quarter: 2008Q1

REPORT INFORMATION
  Report Type: 
  Country: None (occurrence: None)
  Receive Date: 20080215
  Receipt Date: 20080214
  Transmission Date: 20080703
  Serious: Yes (Hospitalization)
  Sender: FDA-Public Use
  Company Number: FR-SP-2008-00004

PATIENT
  Age: 61 Year
  Sex: Male

DRUGS (1)
  1. IMMUCYST [Suspect]
     Indication: BLADDER CANCER
     Dosage: 1/WEEK
     Route: 043
     Dates: start: 20060719, end: 20060823

REACTIONS (7)
  - BALANITIS [None]
  - BOVINE TUBERCULOSIS [None]
  - CYSTITIS [None]
  - DYSURIA [None]
  - INJECTION SITE REACTION [None]
  - LYMPHANGITIS [None]
  - NODULE [None]
